FAERS Safety Report 5403866-1 (Version None)
Quarter: 2007Q3

REPORT INFORMATION
  Report Type: 
  Country: None (occurrence: None)
  Receive Date: 20070712
  Receipt Date: 20060613
  Transmission Date: 20080115
  Serious: Yes (Other)
  Sender: FDA-Public Use
  Company Number: 2006076023

PATIENT
  Age: 71 Year
  Sex: Female
  Weight: 63.9572 kg

DRUGS (2)
  1. QUINAPRIL HCL [Suspect]
     Indication: BLOOD PRESSURE
     Dosage: 20 MG (20 MG,FREQUENCY: QD INTERVAL: EVERY DAY), ORAL
     Route: 048
     Dates: start: 20060401
  2. FUROSEMIDE [Suspect]
     Indication: ILL-DEFINED DISORDER

REACTIONS (2)
  - DYSPHAGIA [None]
  - RASH MACULAR [None]
